FAERS Safety Report 17064068 (Version 1)
Quarter: 2019Q4

REPORT INFORMATION
  Report Type: Spontaneous
  Country: BR (occurrence: BR)
  Receive Date: 20191122
  Receipt Date: 20191122
  Transmission Date: 20200122
  Serious: Yes (Hospitalization, Other)
  Sender: FDA-Public Use
  Company Number: BR-SA-2019SA319956

PATIENT
  Age: 83 Year

DRUGS (5)
  1. OFLOXACIN. [Concomitant]
     Active Substance: OFLOXACIN
     Indication: DEVICE RELATED INFECTION
  2. RIFAMPICIN [Suspect]
     Active Substance: RIFAMPIN
     Indication: DEVICE RELATED INFECTION
  3. PRISTINAMYCIN [Suspect]
     Active Substance: PRISTINAMYCIN
     Indication: DEVICE RELATED INFECTION
  4. AMOXICILLIN (SALT NOT SPECIFIED) [Suspect]
     Active Substance: AMOXICILLIN
     Indication: DEVICE RELATED INFECTION
     Dosage: UNK
     Dates: start: 2004, end: 2004
  5. OXACILLIN SODIUM [Suspect]
     Active Substance: OXACILLIN SODIUM
     Indication: DEVICE RELATED INFECTION
     Route: 042

REACTIONS (5)
  - Drug resistance [Unknown]
  - Arthralgia [Unknown]
  - Pyrexia [Unknown]
  - Device related infection [Unknown]
  - Joint swelling [Unknown]
